FAERS Safety Report 6897017-4 (Version None)
Quarter: 2010Q3

REPORT INFORMATION
  Report Type: 
  Country: None (occurrence: None)
  Receive Date: 20100802
  Receipt Date: 20070305
  Transmission Date: 20110219
  Serious: No
  Sender: FDA-Public Use
  Company Number: US-PFIZER INC-2007018461

PATIENT
  Sex: Female
  Weight: 63.5 kg

DRUGS (4)
  1. LYRICA [Suspect]
     Indication: PERIPHERAL SENSORY NEUROPATHY
     Dates: start: 20060901, end: 20061001
  2. LYRICA [Suspect]
     Indication: PARAESTHESIA
  3. LYRICA [Suspect]
     Indication: BURNING SENSATION
  4. SYNTHROID [Concomitant]
     Indication: THYROIDECTOMY
     Dates: start: 19820101

REACTIONS (2)
  - ABDOMINAL PAIN UPPER [None]
  - ALOPECIA [None]
